FAERS Safety Report 7078643-9 (Version None)
Quarter: 2010Q4

REPORT INFORMATION
  Report Type: 
  Country: None (occurrence: None)
  Receive Date: 20101102
  Receipt Date: 20101019
  Transmission Date: 20110411
  Serious: Yes (Other)
  Sender: FDA-Public Use
  Company Number: PHHY2010US70734

PATIENT

DRUGS (1)
  1. AFINITOR [Suspect]
     Dosage: UNK

REACTIONS (3)
  - DEPRESSION [None]
  - FATIGUE [None]
  - GASTROINTESTINAL TOXICITY [None]
